FAERS Safety Report 4664128-3 (Version None)
Quarter: 2005Q2

REPORT INFORMATION
  Report Type: 
  Country: None (occurrence: None)
  Receive Date: 20050516
  Receipt Date: 20050516
  Transmission Date: 20051028
  Serious: Yes (Hospitalization)
  Sender: FDA-Public Use
  Company Number: None

PATIENT
  Sex: Female
  Weight: 55.3388 kg

DRUGS (1)
  1. ACTOS [Suspect]
     Indication: DIABETES MELLITUS
     Dosage: 15 MG   QAM X 2 WEEKS   ORAL
     Route: 048
     Dates: start: 20050426, end: 20050510

REACTIONS (4)
  - CONFUSIONAL STATE [None]
  - FATIGUE [None]
  - HYPONATRAEMIA [None]
  - SPEECH DISORDER [None]
